FAERS Safety Report 7347737-2 (Version None)
Quarter: 2011Q1

REPORT INFORMATION
  Report Type: 
  Country: None (occurrence: None)
  Receive Date: 20110218
  Receipt Date: 20100910
  Transmission Date: 20110831
  Serious: Yes (Hospitalization)
  Sender: FDA-Public Use
  Company Number: 2010026411

PATIENT
  Sex: Male
  Weight: 57.6 kg

DRUGS (4)
  1. HIZENTRA [Suspect]
     Indication: IMMUNODEFICIENCY COMMON VARIABLE
     Dosage: 7G QD, INITIALLY 5 ML OVER 2 HOURS, THEN 30 ML OVER 4 HOURS SUBCUTANEOUS
     Route: 058
     Dates: start: 20100907, end: 20100907
  2. VYVANSE [Concomitant]
  3. ACYCLOVIR [Concomitant]
  4. ADVAIR DISKUS 100/50 [Concomitant]

REACTIONS (5)
  - URTICARIA [None]
  - PHARYNGEAL OEDEMA [None]
  - SWOLLEN TONGUE [None]
  - ANAPHYLACTIC REACTION [None]
  - LIP SWELLING [None]
